FAERS Safety Report 6036810-7 (Version None)
Quarter: 2009Q1

REPORT INFORMATION
  Report Type: 
  Country: None (occurrence: None)
  Receive Date: 20090114
  Receipt Date: 20090105
  Transmission Date: 20090719
  Serious: Yes (Other)
  Sender: FDA-Public Use
  Company Number: PHEH2004US09663

PATIENT
  Sex: Female
  Weight: 52.245 kg

DRUGS (21)
  1. ESTRADERM [Suspect]
     Indication: HORMONE REPLACEMENT THERAPY
     Route: 062
     Dates: start: 19990701, end: 19990901
  2. MPA [Suspect]
     Indication: MENOPAUSE
     Dosage: 2.5MG UNK
     Dates: start: 19980320, end: 20001017
  3. PROVERA [Suspect]
     Dates: start: 19980301, end: 20001001
  4. PREMARIN [Suspect]
     Indication: MENOPAUSE
     Dosage: 0.625MG UNK
     Dates: start: 19980320, end: 20001017
  5. PREMPRO [Suspect]
     Indication: MENOPAUSE
     Dosage: .625MG UNK
     Dates: start: 20001017, end: 20010219
  6. CYCRIN [Suspect]
     Dates: start: 19980320
  7. PROMETRIUM [Suspect]
     Dosage: 100MG UNK
     Dates: start: 20010313, end: 20010912
  8. IMITREX [Concomitant]
     Indication: MIGRAINE
     Dosage: 25 MG, UNK
     Route: 048
     Dates: start: 19961107
  9. NORFLEX [Concomitant]
     Dosage: 100MG UNK
     Dates: start: 19970505
  10. ERCAF [Concomitant]
     Indication: MIGRAINE
     Dates: start: 19960901
  11. RESPAIRE-120 [Concomitant]
     Indication: MIGRAINE
     Dosage: 250/120MG UNK
     Dates: start: 19990727
  12. TAMOXIFEN CITRATE [Concomitant]
     Dosage: 10MG BID
     Dates: start: 20010329
  13. TAMOXIFEN CITRATE [Concomitant]
     Dosage: THREE CYCLES
     Dates: start: 20010601, end: 20040901
  14. KEFLEX [Concomitant]
     Dates: start: 20010612
  15. ARIMIDEX [Concomitant]
     Indication: HORMONE THERAPY
     Dosage: 1MG QAM, 60 CYCLES
     Route: 048
     Dates: start: 20011001, end: 20061001
  16. ARIMIDEX [Concomitant]
     Dosage: UNK
  17. TRAZODONE HCL [Concomitant]
     Dosage: 50 MG, QD
     Route: 048
  18. FOSAMAX [Concomitant]
     Indication: BONE DENSITY DECREASED
     Dosage: 70MG QW
     Dates: start: 20030331
  19. FOSAMAX [Concomitant]
     Dosage: 70 MG QW
     Dates: end: 20070101
  20. ZOMIG [Concomitant]
     Indication: MIGRAINE
     Dosage: 5 MG, PRN
  21. AMBIEN [Concomitant]
     Indication: POOR QUALITY SLEEP
     Dosage: 10 MG, QHS

REACTIONS (33)
  - ARTHRALGIA [None]
  - BREAST CALCIFICATIONS [None]
  - BREAST CANCER STAGE II [None]
  - BREAST CYST [None]
  - DIVERTICULUM INTESTINAL [None]
  - DRUG INTOLERANCE [None]
  - ERYTHEMA [None]
  - FALL [None]
  - FRACTURE REDUCTION [None]
  - HAEMORRHOIDS [None]
  - HERPES ZOSTER [None]
  - HOT FLUSH [None]
  - IMPACTED FRACTURE [None]
  - INSOMNIA [None]
  - LYMPHADENECTOMY [None]
  - MALIGNANT BREAST LUMP REMOVAL [None]
  - MASTECTOMY [None]
  - MYALGIA [None]
  - OESTROGEN RECEPTOR ASSAY POSITIVE [None]
  - OSTEOPENIA [None]
  - OSTEOPOROSIS [None]
  - PAIN [None]
  - POST PROCEDURAL FISTULA [None]
  - POSTOPERATIVE ABSCESS [None]
  - POSTOPERATIVE WOUND INFECTION [None]
  - PURULENT DISCHARGE [None]
  - RADIATION ASSOCIATED PAIN [None]
  - RADIOTHERAPY [None]
  - RESORPTION BONE INCREASED [None]
  - SWELLING [None]
  - VASCULAR CALCIFICATION [None]
  - VISUAL IMPAIRMENT [None]
  - WOUND NECROSIS [None]
